FAERS Safety Report 5851485-5 (Version None)
Quarter: 2008Q3

REPORT INFORMATION
  Report Type: 
  Country: None (occurrence: None)
  Receive Date: 20080731
  Receipt Date: 20080414
  Transmission Date: 20090109
  Serious: No
  Sender: FDA-Public Use
  Company Number: US200804004626

PATIENT
  Age: 73 Year
  Sex: Male
  Weight: 104.3 kg

DRUGS (15)
  1. BYETTA [Suspect]
     Indication: TYPE 2 DIABETES MELLITUS
     Dosage: 5 UG, 2/D SUBCUTANEOUS; 10 UG, 2/D, SUBCUTANEOUS
     Route: 058
     Dates: start: 20070101, end: 20070101
  2. BYETTA [Suspect]
     Indication: TYPE 2 DIABETES MELLITUS
     Dosage: 5 UG, 2/D SUBCUTANEOUS; 10 UG, 2/D, SUBCUTANEOUS
     Route: 058
     Dates: start: 20070101
  3. EXENATIDE 5MCG PEN, DISPOSABLE DEVICE (EXENATIDE PEN (5MCG)) PEN, DISP [Concomitant]
  4. GLYBURIDE [Concomitant]
  5. SYNTHROID [Concomitant]
  6. ASPIRIN [Concomitant]
  7. MULTIVITAMIN [Concomitant]
  8. TRUSOPT [Concomitant]
  9. XALATAN (LATANOPROST) EYE DROPS [Concomitant]
  10. PAXIL [Concomitant]
  11. HYTRIN [Concomitant]
  12. PRAVACHOL [Concomitant]
  13. ACETAMINOPHEN [Concomitant]
  14. HYDROCODONE (HYDROCODONE) [Concomitant]
  15. ALTACE [Concomitant]

REACTIONS (4)
  - DECREASED APPETITE [None]
  - SKIN NODULE [None]
  - URTICARIA [None]
  - WEIGHT DECREASED [None]
